FAERS Safety Report 9010932 (Version 1)
Quarter: 2013Q1

REPORT INFORMATION
  Report Type: Spontaneous
  Country: CZ (occurrence: CZ)
  Receive Date: 20130109
  Receipt Date: 20130109
  Transmission Date: 20140127
  Serious: Yes (Other)
  Sender: FDA-Public Use
  Company Number: CZ-JNJFOC-20130103213

PATIENT
  Age: 20 Year
  Sex: Male

DRUGS (2)
  1. ETOMIDATE [Suspect]
     Indication: CUSHING^S SYNDROME
     Route: 042
  2. KETOCONAZOLE [Suspect]
     Indication: CUSHING^S SYNDROME
     Route: 065

REACTIONS (3)
  - Pneumocystis jirovecii pneumonia [Unknown]
  - Blood cortisol decreased [Unknown]
  - Off label use [Unknown]
